FAERS Safety Report 4732814-2 (Version None)
Quarter: 2005Q3

REPORT INFORMATION
  Report Type: 
  Country: None (occurrence: None)
  Receive Date: 20050725
  Receipt Date: 20040618
  Transmission Date: 20060218
  Serious: Yes (Other)
  Sender: FDA-Public Use
  Company Number: WAES 0406USA01930

PATIENT
  Age: 50 Year
  Sex: Female

DRUGS (1)
  1. VIOXX [Suspect]
     Dosage: 25 MG/DAILY/PO
     Route: 048

REACTIONS (1)
  - MALIGNANT HYPERTENSION [None]
